FAERS Safety Report 23108665 (Version 1)
Quarter: 2023Q4

REPORT INFORMATION
  Report Type: Report from Study
  Country: US (occurrence: US)
  Receive Date: 20231026
  Receipt Date: 20231026
  Transmission Date: 20240110
  Serious: No
  Sender: FDA-Public Use
  Company Number: US-002147023-NVSC2023US228649

PATIENT
  Sex: Male

DRUGS (1)
  1. ENTRESTO [Suspect]
     Active Substance: SACUBITRIL\VALSARTAN
     Indication: Cardiac failure
     Dosage: 24/26 MG TWICE
     Route: 065
     Dates: start: 20231022

REACTIONS (2)
  - Hypotension [Unknown]
  - Pulse abnormal [Unknown]

NARRATIVE: CASE EVENT DATE: 20231022
